FAERS Safety Report 9931320 (Version 2)
Quarter: 2014Q2

REPORT INFORMATION
  Report Type: Spontaneous
  Country: US (occurrence: US)
  Receive Date: 20140228
  Receipt Date: 20140605
  Transmission Date: 20141212
  Serious: Yes (Other)
  Sender: FDA-Public Use
  Company Number: US-BIOGENIDEC-2014BI019234

PATIENT
  Sex: Female

DRUGS (6)
  1. TYSABRI [Suspect]
     Indication: MULTIPLE SCLEROSIS
  2. ALPRAZOLAM [Concomitant]
     Indication: SLEEP DISORDER
     Route: 048
  3. CHOLECALCIFEROL [Concomitant]
     Route: 048
  4. VITAMIN D3 [Concomitant]
     Route: 048
  5. METHOCARBAMOL [Concomitant]
     Indication: PAIN
  6. METHOCARBAMOL [Concomitant]
     Indication: MUSCLE SPASMS

REACTIONS (1)
  - Intraductal proliferative breast lesion [Unknown]
